FAERS Safety Report 9420062 (Version 3)
Quarter: 2013Q3

REPORT INFORMATION
  Report Type: Spontaneous
  Country: US (occurrence: US)
  Receive Date: 20130725
  Receipt Date: 20130827
  Transmission Date: 20140515
  Serious: Yes (Hospitalization)
  Sender: FDA-Public Use
  Company Number: US-GLAXOSMITHKLINE-A1033729A

PATIENT
  Sex: Female

DRUGS (18)
  1. ADVAIR [Suspect]
     Indication: CHRONIC OBSTRUCTIVE PULMONARY DISEASE
     Dosage: 1PUFF TWICE PER DAY
     Route: 055
  2. SPIRIVA [Concomitant]
  3. TORSEMIDE [Concomitant]
  4. AMBIEN CR [Concomitant]
  5. TRAZODONE [Concomitant]
  6. ALBUTEROL [Concomitant]
  7. OXYCODONE [Concomitant]
  8. CIPRO [Concomitant]
  9. FLEXERIL [Concomitant]
  10. COLACE [Concomitant]
  11. CYMBALTA [Concomitant]
  12. NEURONTIN [Concomitant]
  13. OXYCONTIN [Concomitant]
  14. MIRALAX [Concomitant]
  15. VITAMINS [Concomitant]
  16. PHENERGAN [Concomitant]
  17. XANAX [Concomitant]
  18. OXYGEN [Concomitant]

REACTIONS (8)
  - Pneumonia [Unknown]
  - Decubitus ulcer [Not Recovered/Not Resolved]
  - Impaired healing [Not Recovered/Not Resolved]
  - Fibromyalgia [Not Recovered/Not Resolved]
  - Neuropathy peripheral [Not Recovered/Not Resolved]
  - Hypoaesthesia [Not Recovered/Not Resolved]
  - Thermal burn [Unknown]
  - Pain in extremity [Unknown]
